FAERS Safety Report 7185739-X (Version None)
Quarter: 2010Q4

REPORT INFORMATION
  Report Type: 
  Country: None (occurrence: None)
  Receive Date: 20101210
  Receipt Date: 20101125
  Transmission Date: 20110411
  Serious: Yes (Other)
  Sender: FDA-Public Use
  Company Number: 022978

PATIENT
  Age: 35 Year
  Sex: Male

DRUGS (9)
  1. LEVETIRACETAM [Suspect]
     Dosage: (UP-TITRATION)
  2. CLARITHROMYCIN [Concomitant]
  3. DAPSONE [Concomitant]
  4. CLONAZEPAM [Concomitant]
  5. RIFABUTIN [Concomitant]
  6. RITONAVIR [Concomitant]
  7. ATAZANAVIR [Concomitant]
  8. EMTRICITABINE W/TENOFOVIR [Concomitant]
  9. SERTRALINE [Concomitant]

REACTIONS (1)
  - THROMBOCYTOPENIA [None]
